FAERS Safety Report 16117966 (Version 2)
Quarter: 2020Q2

REPORT INFORMATION
  Report Type: Spontaneous
  Country: CH (occurrence: CH)
  Receive Date: 20190326
  Receipt Date: 20200602
  Transmission Date: 20200713
  Serious: Yes (Hospitalization, Other)
  Sender: FDA-Public Use
  Company Number: CH-ASTRAZENECA-2019SE43338

PATIENT
  Age: 29814 Day
  Sex: Male

DRUGS (23)
  1. CEFTRIAXONE. [Suspect]
     Active Substance: CEFTRIAXONE
     Route: 042
     Dates: start: 20190209, end: 20190220
  2. BELOC ZOK [Concomitant]
     Active Substance: METOPROLOL SUCCINATE
     Route: 048
  3. TORASEMIDE [Concomitant]
     Active Substance: TORSEMIDE
  4. AMOXICILLINE [Concomitant]
     Active Substance: AMOXICILLIN
     Dates: start: 20190305, end: 20190311
  5. FOLIC ACID. [Concomitant]
     Active Substance: FOLIC ACID
  6. TORASEMIDE [Concomitant]
     Active Substance: TORSEMIDE
  7. FOLIC ACID. [Concomitant]
     Active Substance: FOLIC ACID
  8. ZYLORIC [Suspect]
     Active Substance: ALLOPURINOL
     Route: 048
     Dates: end: 20190306
  9. ELIQUIS [Concomitant]
     Active Substance: APIXABAN
     Dates: start: 20190220
  10. NEXIUM [Suspect]
     Active Substance: ESOMEPRAZOLE MAGNESIUM
     Route: 048
     Dates: start: 20190207, end: 20190220
  11. COLCHICINE. [Interacting]
     Active Substance: COLCHICINE
     Route: 048
     Dates: start: 20190207, end: 20190305
  12. LINEZOLID. [Suspect]
     Active Substance: LINEZOLID
     Route: 048
     Dates: start: 20190220, end: 20190305
  13. PANTOPRAZOLE [Concomitant]
     Active Substance: PANTOPRAZOLE
     Dates: start: 20190221, end: 20190305
  14. CRESTOR [Suspect]
     Active Substance: ROSUVASTATIN CALCIUM
     Route: 048
  15. CORDARONE [Interacting]
     Active Substance: AMIODARONE HYDROCHLORIDE
     Route: 048
     Dates: end: 20190306
  16. CO-AMOXICILLIN [Suspect]
     Active Substance: AMOXICILLIN\CLAVULANATE POTASSIUM
     Dosage: 2 G AS NECESSARY
     Route: 065
     Dates: start: 20190208, end: 20190220
  17. DAFALGAN [Suspect]
     Active Substance: ACETAMINOPHEN
     Route: 048
     Dates: start: 20190207
  18. EZETROL [Suspect]
     Active Substance: EZETIMIBE
     Route: 048
     Dates: start: 20190313
  19. CLEXANE [Suspect]
     Active Substance: ENOXAPARIN SODIUM
     Dosage: TWO TIMES A DAY
     Route: 058
     Dates: start: 20190212, end: 20190214
  20. CLEXANE [Suspect]
     Active Substance: ENOXAPARIN SODIUM
     Dosage: (80) TWO TIMES A DAY
     Route: 058
     Dates: start: 20190215, end: 20190220
  21. ELIQUIS [Concomitant]
     Active Substance: APIXABAN
     Dates: end: 20190209
  22. ELIQUIS [Concomitant]
     Active Substance: APIXABAN
     Dates: end: 20190306
  23. PANTOPRAZOLE [Concomitant]
     Active Substance: PANTOPRAZOLE
     Dates: end: 20190206

REACTIONS (2)
  - Mixed liver injury [Recovered/Resolved]
  - Thrombocytopenia [Recovered/Resolved]

NARRATIVE: CASE EVENT DATE: 20190305
